FAERS Safety Report 8512197-2 (Version None)
Quarter: 2012Q2

REPORT INFORMATION
  Report Type: 
  Country: None (occurrence: None)
  Receive Date: 20120405
  Receipt Date: 20081017
  Transmission Date: 20120825
  Serious: Yes (Other)
  Sender: FDA-Public Use
  Company Number: PHEH2008US08712

PATIENT
  Age: 68 Year
  Sex: Female

DRUGS (12)
  1. LYRICA [Concomitant]
  2. HYDROCODONE BITARTRATE [Concomitant]
  3. NORVASC [Concomitant]
  4. AMBIEN [Concomitant]
  5. PHENAZOPYRIDINE (PHENAZOPYRIDINE) [Concomitant]
  6. ALPRAZOLAM [Concomitant]
  7. COREG [Concomitant]
  8. MEGESTROL ACETATE [Concomitant]
  9. CALCIUM WITH VITAMIN D (CALCIUM PHOSPHATE, CALCIUM SODIUM LACTATE, ERG [Concomitant]
  10. COUMADIN [Concomitant]
  11. VITAMIN D [Concomitant]
  12. RECLAST [Suspect]
     Indication: OSTEOPOROSIS
     Dosage: 5 MG, ONCE/SINGLE, IV INFUSION
     Dates: start: 20080910, end: 20080910

REACTIONS (5)
  - ASTHENIA [None]
  - THYROID DISORDER [None]
  - CHEST PAIN [None]
  - BALANCE DISORDER [None]
  - HYPOCALCAEMIA [None]
